FAERS Safety Report 12156871 (Version 1)
Quarter: 2016Q1

REPORT INFORMATION
  Report Type: Spontaneous
  Country: FR (occurrence: FR)
  Receive Date: 20160307
  Receipt Date: 20160307
  Transmission Date: 20160526
  Serious: Yes (Hospitalization, Other)
  Sender: FDA-Public Use
  Company Number: FR-ABBVIE-16P-056-1574617-00

PATIENT
  Age: 49 Year
  Sex: Male

DRUGS (5)
  1. TRUVADA [Suspect]
     Active Substance: EMTRICITABINE\TENOFOVIR DISOPROXIL FUMARATE
     Dosage: 200MG/245MG
     Route: 048
     Dates: start: 20160115, end: 20160124
  2. TRUVADA [Suspect]
     Active Substance: EMTRICITABINE\TENOFOVIR DISOPROXIL FUMARATE
     Indication: HIV INFECTION
     Route: 048
     Dates: start: 200704, end: 201510
  3. NORVIR [Suspect]
     Active Substance: RITONAVIR
     Route: 048
     Dates: start: 20160115, end: 20160124
  4. PREZISTA [Suspect]
     Active Substance: DARUNAVIR ETHANOLATE
     Indication: HIV INFECTION
     Route: 048
     Dates: start: 20160115, end: 20160124
  5. NORVIR [Suspect]
     Active Substance: RITONAVIR
     Indication: HIV INFECTION
     Route: 048
     Dates: start: 200704, end: 201510

REACTIONS (11)
  - Dermatitis exfoliative [Recovered/Resolved]
  - Pharyngitis [Recovered/Resolved]
  - Eosinophilia [Recovered/Resolved]
  - Lymphadenopathy [Recovered/Resolved]
  - Pruritus [Recovered/Resolved]
  - Hypertriglyceridaemia [Recovered/Resolved]
  - Mouth haemorrhage [Recovered/Resolved]
  - Hepatocellular injury [Recovered/Resolved]
  - Rash maculo-papular [Recovered/Resolved]
  - Purpura [Recovered/Resolved]
  - Conjunctivitis [Recovered/Resolved]

NARRATIVE: CASE EVENT DATE: 20160124
